FAERS Safety Report 8116450-6 (Version None)
Quarter: 2011Q4

REPORT INFORMATION
  Report Type: 
  Country: None (occurrence: None)
  Receive Date: 20111227
  Receipt Date: 20110901
  Transmission Date: 20120403
  Serious: No
  Sender: FDA-Public Use
  Company Number: PHEH2011US03330

PATIENT
  Age: 43 Year
  Sex: Female

DRUGS (11)
  1. GILENYA [Suspect]
     Indication: MULTIPLE SCLEROSIS
     Dosage: 0.5 MG, QD, ORAL
     Route: 048
     Dates: start: 20110629
  2. CALCIUM CARBONATE [Concomitant]
  3. MAGNESIUM (MAGNESIUM) [Concomitant]
  4. ZINC (ZINC) [Concomitant]
  5. AXERT [Concomitant]
  6. FLEXERIL [Concomitant]
  7. LIDODERM [Concomitant]
  8. VICODIN ES [Concomitant]
  9. NITRODERM [Concomitant]
  10. RANITIDINE HYDROCHLORIDE [Concomitant]
  11. FAMPRIDINE (FAMPRIDINE) [Concomitant]

REACTIONS (2)
  - PHOTOSENSITIVITY REACTION [None]
  - FATIGUE [None]
